FAERS Safety Report 9727111 (Version 2)
Quarter: 2014Q1

REPORT INFORMATION
  Report Type: Spontaneous
  Country: US (occurrence: US)
  Receive Date: 20131203
  Receipt Date: 20140128
  Transmission Date: 20141002
  Serious: Yes (Hospitalization)
  Sender: FDA-Public Use
  Company Number: US-UCBSA-104174

PATIENT
  Age: 22 Year
  Sex: Male

DRUGS (2)
  1. CIMZIA [Suspect]
     Indication: CROHN^S DISEASE
     Dosage: 400 MG/MONTH
     Dates: start: 201304
  2. NORCO [Concomitant]

REACTIONS (1)
  - Intestinal obstruction [Recovering/Resolving]
